FAERS Safety Report 9453739 (Version 2)
Quarter: 2013Q3

REPORT INFORMATION
  Report Type: Spontaneous
  Country: US (occurrence: None)
  Receive Date: 20130807
  Receipt Date: 20130816
  Transmission Date: 20140515
  Serious: Yes (Other)
  Sender: FDA-Public Use
  Company Number: TPA2013A07217

PATIENT
  Age: 73 Year
  Sex: Female

DRUGS (2)
  1. EDARBYCLOR [Suspect]
     Dosage: 1 IN 1D
     Dates: start: 20130511, end: 20130711
  2. JANUVIA (SITAGLIPTIN PHOSPHATE) [Concomitant]

REACTIONS (2)
  - Angioedema [None]
  - Condition aggravated [None]
